FAERS Safety Report 12349032 (Version 2)
Quarter: 2016Q2

REPORT INFORMATION
  Report Type: Spontaneous
  Country: GB (occurrence: GB)
  Receive Date: 20160509
  Receipt Date: 20160601
  Transmission Date: 20160815
  Serious: Yes (Other)
  Sender: FDA-Public Use
  Company Number: GB-JNJFOC-20160100176

PATIENT
  Age: 67 Year
  Sex: Female

DRUGS (3)
  1. SIMPONI [Suspect]
     Active Substance: GOLIMUMAB
     Indication: PRODUCT USED FOR UNKNOWN INDICATION
     Route: 058
  2. SIMPONI [Suspect]
     Active Substance: GOLIMUMAB
     Indication: PRODUCT USED FOR UNKNOWN INDICATION
     Route: 058
     Dates: start: 20160221
  3. SIMPONI [Suspect]
     Active Substance: GOLIMUMAB
     Indication: PRODUCT USED FOR UNKNOWN INDICATION
     Route: 058
     Dates: start: 201605

REACTIONS (21)
  - Nausea [Recovering/Resolving]
  - Mobility decreased [Unknown]
  - Neck pain [Unknown]
  - Dizziness [Unknown]
  - Headache [Recovered/Resolved]
  - Hiccups [Unknown]
  - Arthropathy [Unknown]
  - Condition aggravated [Recovered/Resolved]
  - Fatigue [Recovering/Resolving]
  - Diarrhoea [Unknown]
  - Arthralgia [Not Recovered/Not Resolved]
  - Musculoskeletal stiffness [Unknown]
  - Joint stiffness [Unknown]
  - Pain in extremity [Unknown]
  - Sleep disorder [Recovering/Resolving]
  - Abdominal pain [Unknown]
  - Plantar fasciitis [Recovered/Resolved]
  - Drug effect decreased [Unknown]
  - Pain [Unknown]
  - Abdominal discomfort [Recovering/Resolving]
  - Joint swelling [Unknown]

NARRATIVE: CASE EVENT DATE: 201604
